FAERS Safety Report 10640197 (Version 1)
Quarter: 2014Q4

REPORT INFORMATION
  Report Type: Spontaneous
  Country: NL (occurrence: None)
  Receive Date: 20141205
  Receipt Date: 20141205
  Transmission Date: 20150529
  Serious: Yes (Death)
  Sender: FDA-Public Use
  Company Number: 2014NL010254

PATIENT
  Age: 79 Year
  Sex: Male

DRUGS (1)
  1. ELIGARD [Suspect]
     Active Substance: LEUPROLIDE ACETATE
     Indication: PROSTATE CANCER
     Dosage: 45 MG, ONCE IN 6 MONTHS, SUBCUTANEOUS
     Route: 058
     Dates: end: 20140616

REACTIONS (1)
  - Euthanasia [None]

NARRATIVE: CASE EVENT DATE: 20140829
